FAERS Safety Report 7323675-6 (Version None)
Quarter: 2011Q1

REPORT INFORMATION
  Report Type: 
  Country: None (occurrence: None)
  Receive Date: 20110301
  Receipt Date: 20110217
  Transmission Date: 20110831
  Serious: Yes (Hospitalization, Other)
  Sender: FDA-Public Use
  Company Number: PHHY2011US13342

PATIENT
  Sex: Male

DRUGS (3)
  1. EXJADE [Suspect]
     Dosage: 1000 MG, QD
     Route: 048
  2. BLOOD TRANSFUSION, AUXILIARY PRODUCTS [Concomitant]
     Dosage: UNK
     Dates: start: 20101229
  3. EXJADE [Suspect]
     Indication: IRON METABOLISM DISORDER
     Dosage: 1000 MG, QD
     Route: 048
     Dates: start: 20080101

REACTIONS (3)
  - WHITE BLOOD CELL COUNT INCREASED [None]
  - LIVER DISORDER [None]
  - AORTIC VALVE DISEASE [None]
